FAERS Safety Report 10159489 (Version 2)
Quarter: 2014Q2

REPORT INFORMATION
  Report Type: Spontaneous
  Country: US (occurrence: None)
  Receive Date: 20140506
  Receipt Date: 20140516
  Transmission Date: 20141212
  Serious: Yes (Other)
  Sender: FDA-Public Use
  Company Number: AUR-APL-2014-05231

PATIENT
  Age: 80 Year
  Sex: Female

DRUGS (3)
  1. RISPERIDONE (RISPERIDONE) [Suspect]
     Indication: AGITATION
  2. RISPERIDONE (RISPERIDONE) [Suspect]
     Indication: DELUSION
  3. RISPERIDONE (RISPERIDONE) [Suspect]
     Indication: DEMENTIA

REACTIONS (1)
  - No therapeutic response [None]
